FAERS Safety Report 4664757-7 (Version None)
Quarter: 2005Q2

REPORT INFORMATION
  Report Type: 
  Country: None (occurrence: None)
  Receive Date: 20050518
  Receipt Date: 20050510
  Transmission Date: 20051028
  Serious: Yes (Hospitalization, Other)
  Sender: FDA-Public Use
  Company Number: JP-JNJFOC-20050406907

PATIENT
  Sex: Female
  Weight: 48 kg

DRUGS (7)
  1. REMICADE [Suspect]
     Dosage: 4TH INFUSION
     Route: 042
  2. REMICADE [Suspect]
     Route: 042
  3. REMICADE [Suspect]
     Route: 042
  4. REMICADE [Suspect]
     Indication: RHEUMATOID ARTHRITIS
     Route: 042
  5. RHEUMATREX [Concomitant]
     Route: 049
  6. RHEUMATREX [Concomitant]
     Route: 049
  7. RHEUMATREX [Concomitant]
     Route: 049

REACTIONS (1)
  - BREAST CANCER [None]
